FAERS Safety Report 6609930-3 (Version None)
Quarter: 2010Q1

REPORT INFORMATION
  Report Type: 
  Country: None (occurrence: None)
  Receive Date: 20100302
  Receipt Date: 20100218
  Transmission Date: 20100710
  Serious: Yes (Death)
  Sender: FDA-Public Use
  Company Number: DE-SANOFI-AVENTIS-2010SA002100

PATIENT
  Age: 61 Year
  Sex: Male

DRUGS (26)
  1. LANSOPRAZOLE [Suspect]
     Indication: SEPSIS
     Route: 048
     Dates: start: 20091020, end: 20091027
  2. ARIXTRA [Suspect]
     Indication: DRUG USE FOR UNKNOWN INDICATION
     Route: 065
     Dates: start: 20091020, end: 20091028
  3. ACETYLSALICYLIC ACID [Suspect]
     Indication: DRUG USE FOR UNKNOWN INDICATION
     Route: 048
     Dates: start: 20091020, end: 20091028
  4. FINLEPSIN [Suspect]
     Indication: DRUG USE FOR UNKNOWN INDICATION
     Route: 048
     Dates: start: 20091020, end: 20091028
  5. SIMVASTATIN [Suspect]
     Indication: DRUG USE FOR UNKNOWN INDICATION
     Route: 048
     Dates: start: 20091025, end: 20091027
  6. METOPROLOL SUCCINATE [Suspect]
     Indication: DRUG USE FOR UNKNOWN INDICATION
     Dosage: DOSE: 47.5 MG AND 23.25 MG
     Route: 048
     Dates: start: 20091020, end: 20091024
  7. TAVOR [Suspect]
     Indication: DRUG USE FOR UNKNOWN INDICATION
     Route: 048
     Dates: start: 20091027
  8. TAVOR [Suspect]
     Route: 048
     Dates: start: 20091020, end: 20091026
  9. DELIX [Suspect]
     Indication: DRUG USE FOR UNKNOWN INDICATION
     Route: 048
     Dates: start: 20091021, end: 20091024
  10. ZOPICLON [Suspect]
     Indication: DRUG USE FOR UNKNOWN INDICATION
     Route: 048
     Dates: start: 20091020, end: 20091026
  11. EUNERPAN [Suspect]
     Indication: DRUG USE FOR UNKNOWN INDICATION
     Route: 042
     Dates: start: 20091020, end: 20091027
  12. CLONIDINE HYDROCHLORIDE [Suspect]
     Indication: DRUG USE FOR UNKNOWN INDICATION
     Route: 048
     Dates: start: 20091020, end: 20091024
  13. TORASEMIDE [Suspect]
     Indication: DRUG USE FOR UNKNOWN INDICATION
     Route: 048
     Dates: start: 20091027
  14. TORASEMIDE [Suspect]
     Route: 048
     Dates: start: 20091023, end: 20091026
  15. TORASEMIDE [Suspect]
     Route: 048
     Dates: start: 20091021, end: 20091022
  16. ARTERENOL [Suspect]
     Indication: DRUG USE FOR UNKNOWN INDICATION
     Route: 058
     Dates: start: 20091028
  17. ARTERENOL [Suspect]
     Route: 058
     Dates: start: 20091025, end: 20091027
  18. FLUNITRAZEPAM [Suspect]
     Indication: DRUG USE FOR UNKNOWN INDICATION
     Route: 048
     Dates: start: 20091028
  19. FUROSEMIDE [Suspect]
     Indication: DRUG USE FOR UNKNOWN INDICATION
     Route: 042
     Dates: start: 20091028
  20. ZIENAM [Suspect]
     Indication: DRUG USE FOR UNKNOWN INDICATION
     Route: 042
     Dates: start: 20091028
  21. SULBACTAM [Suspect]
     Indication: DRUG USE FOR UNKNOWN INDICATION
     Route: 042
     Dates: start: 20091025, end: 20091027
  22. BERLINSULIN H [Concomitant]
     Indication: DRUG USE FOR UNKNOWN INDICATION
     Route: 058
     Dates: start: 20091027, end: 20091028
  23. BERLINSULIN H [Concomitant]
     Route: 058
     Dates: start: 20091020, end: 20091021
  24. ACETYLCYSTEINE [Concomitant]
     Indication: DRUG USE FOR UNKNOWN INDICATION
     Route: 048
     Dates: start: 20091020, end: 20091028
  25. KALINOR [Concomitant]
     Indication: DRUG USE FOR UNKNOWN INDICATION
     Route: 048
     Dates: start: 20091027
  26. KALINOR [Concomitant]
     Route: 048
     Dates: start: 20091024, end: 20091026

REACTIONS (1)
  - RHABDOMYOLYSIS [None]
